FAERS Safety Report 9914934 (Version 3)
Quarter: 2014Q1

REPORT INFORMATION
  Report Type: Report from Study
  Country: FR (occurrence: FR)
  Receive Date: 20140220
  Receipt Date: 20140226
  Transmission Date: 20141002
  Serious: Yes (Hospitalization)
  Sender: FDA-Public Use
  Company Number: FR-GILEAD-2012-0063289

PATIENT
  Age: 35 Year
  Sex: Female
  Weight: 105 kg

DRUGS (5)
  1. EMTRICITABINE/TENOFOVIR DISOPROXIL FUMARATE [Suspect]
     Indication: HIV INFECTION
     Dosage: 1 DF, QD
     Route: 065
     Dates: start: 20101210
  2. RITONAVIR [Suspect]
     Indication: HIV INFECTION
     Dosage: 100 UNKNOWN, QD
     Route: 065
     Dates: start: 20101210
  3. DARUNAVIR [Suspect]
     Indication: HIV INFECTION
     Dosage: 400 UNKNOWN, BID
     Route: 065
     Dates: start: 20101210
  4. COMBIVIR [Suspect]
     Indication: HIV INFECTION
     Dosage: UNK
     Route: 065
     Dates: start: 20121012
  5. KALETRA [Suspect]
     Indication: HIV INFECTION
     Dosage: UNK
     Route: 065
     Dates: start: 20121012

REACTIONS (3)
  - Breech presentation [Recovered/Resolved]
  - Premature rupture of membranes [Unknown]
  - Pregnancy [Recovered/Resolved]
